FAERS Safety Report 10409615 (Version 7)
Quarter: 2015Q3

REPORT INFORMATION
  Report Type: Spontaneous
  Country: BR (occurrence: BR)
  Receive Date: 20140826
  Receipt Date: 20150706
  Transmission Date: 20151125
  Serious: Yes (Other)
  Sender: FDA-Public Use
  Company Number: BR-SA-2014SA113036

PATIENT
  Age: 65 Year
  Sex: Female
  Weight: 64 kg

DRUGS (13)
  1. BROMAZEPAM [Concomitant]
     Active Substance: BROMAZEPAM
  2. CLIKSTAR [Concomitant]
     Active Substance: CLIKSTAR
     Indication: DEVICE THERAPY
     Dates: start: 2012
  3. LIPLESS [Concomitant]
     Active Substance: CIPROFIBRATE
  4. BENERVA [Concomitant]
     Active Substance: THIAMINE
  5. CLOPIDOGREL SULFATE [Concomitant]
     Active Substance: CLOPIDOGREL BISULFATE
     Route: 048
  6. VITAMINS NOS [Concomitant]
     Active Substance: VITAMINS
     Indication: BLOOD CALCIUM
  7. 3 EYE DROPS [Concomitant]
  8. LANTUS [Suspect]
     Active Substance: INSULIN GLARGINE
     Indication: TYPE 1 DIABETES MELLITUS
     Route: 058
     Dates: start: 2012
  9. VASILIP [Concomitant]
  10. CEBRALAT [Concomitant]
     Active Substance: CILOSTAZOL
  11. BENICAR [Concomitant]
     Active Substance: OLMESARTAN MEDOXOMIL
     Indication: HYPERTENSION
     Route: 048
     Dates: start: 2012
  12. INSULIN, REGULAR [Concomitant]
     Active Substance: INSULIN NOS
     Dosage: BEFORE MEALS
  13. LANTUS [Suspect]
     Active Substance: INSULIN GLARGINE
     Indication: TYPE 1 DIABETES MELLITUS
     Route: 058

REACTIONS (9)
  - Lacrimation increased [Not Recovered/Not Resolved]
  - Hypertension [Not Recovered/Not Resolved]
  - Blood triglycerides increased [Not Recovered/Not Resolved]
  - Headache [Not Recovered/Not Resolved]
  - Glaucoma [Not Recovered/Not Resolved]
  - Vision blurred [Not Recovered/Not Resolved]
  - Ocular hyperaemia [Not Recovered/Not Resolved]
  - Visual impairment [Not Recovered/Not Resolved]
  - Blood glucose increased [Not Recovered/Not Resolved]

NARRATIVE: CASE EVENT DATE: 2013
